FAERS Safety Report 21530204 (Version 2)
Quarter: 2022Q4

REPORT INFORMATION
  Report Type: Report from Study
  Country: FR (occurrence: FR)
  Receive Date: 20221031
  Receipt Date: 20221208
  Transmission Date: 20230113
  Serious: Yes (Death, Hospitalization, Other)
  Sender: FDA-Public Use
  Company Number: FR-BRISTOL-MYERS SQUIBB COMPANY-2022-127124

PATIENT
  Age: 84 Year
  Sex: Female
  Weight: 70 kg

DRUGS (2)
  1. APIXABAN [Suspect]
     Active Substance: APIXABAN
     Indication: Embolism venous
     Dosage: 5 MG TWICE A DAY OR 2.5 MG TWICE A DAY ACCORDING TO THE RANDOMIZATION GROUP
     Route: 048
     Dates: start: 20220318, end: 20220628
  2. solupred [Concomitant]
     Indication: General physical condition abnormal
     Route: 048
     Dates: start: 20220530

REACTIONS (3)
  - Hepatic cytolysis [Recovering/Resolving]
  - Hepatomegaly [Recovering/Resolving]
  - Disease progression [Fatal]

NARRATIVE: CASE EVENT DATE: 20220621
